FAERS Safety Report 5258508-5 (Version None)
Quarter: 2007Q1

REPORT INFORMATION
  Report Type: 
  Country: None (occurrence: None)
  Receive Date: 20061117
  Receipt Date: 20051129
  Transmission Date: 20070707
  Serious: Yes (Other)
  Sender: FDA-Public Use
  Company Number: US-JNJFOC-20051200482

PATIENT
  Age: 87 Year
  Sex: Male

DRUGS (3)
  1. LEVAQUIN [Suspect]
     Indication: SINUSITIS
     Dosage: SEE IMAGE
     Route: 048
     Dates: start: 20051121, end: 20051126
  2. LEVAQUIN [Suspect]
     Indication: SINUSITIS
     Dosage: SEE IMAGE
     Route: 048
     Dates: start: 20030101
  3. CARDIAZEM (DILTIAZEM HYDROCHLORIDE) [Concomitant]

REACTIONS (1)
  - HEART RATE INCREASED [None]
